FAERS Safety Report 5654908-X (Version None)
Quarter: 2008Q1

REPORT INFORMATION
  Report Type: 
  Country: None (occurrence: None)
  Receive Date: 20080307
  Receipt Date: 20070910
  Transmission Date: 20080703
  Serious: No
  Sender: FDA-Public Use
  Company Number: A0678111A

PATIENT
  Age: 77 Year
  Sex: Male

DRUGS (4)
  1. REQUIP [Suspect]
     Indication: PARKINSON'S DISEASE
     Dosage: 8MG THREE TIMES PER DAY
     Route: 048
     Dates: start: 20030801
  2. PROTONIX [Concomitant]
  3. COZAAR [Concomitant]
     Dates: start: 20000101
  4. FLOMAX [Concomitant]

REACTIONS (1)
  - HAEMOGLOBIN DECREASED [None]
